FAERS Safety Report 14620587 (Version 8)
Quarter: 2020Q3

REPORT INFORMATION
  Report Type: Report from Study
  Country: DE (occurrence: DE)
  Receive Date: 20180309
  Receipt Date: 20200709
  Transmission Date: 20201102
  Serious: Yes (Hospitalization, Other)
  Sender: FDA-Public Use
  Company Number: DE-BRISTOL-MYERS SQUIBB COMPANY-BMS-2014-008248

PATIENT
  Age: 55 Year
  Sex: Male

DRUGS (30)
  1. NOVAMINSULFON [Concomitant]
     Active Substance: METAMIZOLE
     Dosage: 30 DROP 1/12 ML(SOMETIMES DURING NIGHT)
     Route: 065
  2. PANTOPRAZOLE [Concomitant]
     Active Substance: PANTOPRAZOLE
     Indication: PRODUCT USED FOR UNKNOWN INDICATION
     Dosage: 20 MILLIGRAM
     Route: 065
  3. ROACTEMRA [Suspect]
     Active Substance: TOCILIZUMAB
     Dosage: 162 MG, 1 WEEK
     Route: 058
     Dates: start: 20171011
  4. FOLIC ACID. [Concomitant]
     Active Substance: FOLIC ACID
     Dosage: 7.5 MG, 1 WEEK
     Route: 065
  5. RAMIPRIL PLUS [Concomitant]
     Active Substance: HYDROCHLOROTHIAZIDE\RAMIPRIL
     Indication: PRODUCT USED FOR UNKNOWN INDICATION
     Route: 065
  6. ROACTEMRA [Suspect]
     Active Substance: TOCILIZUMAB
     Indication: RHEUMATOID ARTHRITIS
     Dosage: 162 MG, 1 WEEK
     Route: 058
     Dates: start: 20140606, end: 20161015
  7. CORTISONE [Concomitant]
     Active Substance: CORTISONE
     Dosage: 1, UNK, 1DAY INTERVAL
     Route: 065
  8. LOSARTAN. [Concomitant]
     Active Substance: LOSARTAN
     Indication: PRODUCT USED FOR UNKNOWN INDICATION
     Dosage: 50/12.5 MG
     Route: 065
  9. CYANOCOBALAMIN;FOLIC ACID [Concomitant]
     Indication: PRODUCT USED FOR UNKNOWN INDICATION
     Dosage: UNK
     Route: 065
  10. ROACTEMRA [Suspect]
     Active Substance: TOCILIZUMAB
     Dosage: 10 MILLIGRAM
     Route: 058
     Dates: end: 20161015
  11. NOVAMINSULFON [Concomitant]
     Active Substance: METAMIZOLE
     Indication: PAIN
     Dosage: 1 DF, 80?100 GTT
     Route: 065
  12. FOLIC ACID. [Concomitant]
     Active Substance: FOLIC ACID
     Indication: PRODUCT USED FOR UNKNOWN INDICATION
     Dosage: UNK
     Route: 065
  13. LANTAREL [Concomitant]
     Active Substance: METHOTREXATE SODIUM
     Indication: RHEUMATOID ARTHRITIS
     Dosage: 10 MG, 1WEEK
     Route: 065
     Dates: start: 201603
  14. LANTAREL [Concomitant]
     Active Substance: METHOTREXATE SODIUM
     Dosage: 7.5 MG, 1WEEK
     Route: 065
  15. CIMZIA [Suspect]
     Active Substance: CERTOLIZUMAB PEGOL
     Dosage: 10 MILLIGRAM
     Route: 065
     Dates: start: 201603
  16. LANTAREL [Concomitant]
     Active Substance: METHOTREXATE SODIUM
     Dosage: 10 MILLIGRAM, 0.33 WEEK
     Route: 065
  17. ROACTEMRA [Suspect]
     Active Substance: TOCILIZUMAB
     Dosage: 5 MILLIGRAM
     Route: 058
     Dates: end: 20161015
  18. LANTAREL [Concomitant]
     Active Substance: METHOTREXATE SODIUM
     Dosage: 30MG, UNK, 1WEEK
     Route: 065
  19. CORTISONE [Concomitant]
     Active Substance: CORTISONE
     Indication: RHEUMATOID ARTHRITIS
     Dosage: 5 MG, 1 DAY
     Route: 065
  20. TEVANATE [Concomitant]
     Active Substance: ALENDRONIC ACID
     Indication: OSTEOPOROSIS
     Route: 065
  21. ABATACEPT [Suspect]
     Active Substance: ABATACEPT
     Indication: RHEUMATOID ARTHRITIS
     Dosage: UNK
     Route: 065
  22. CIMZIA [Suspect]
     Active Substance: CERTOLIZUMAB PEGOL
     Indication: RHEUMATOID ARTHRITIS
     Dosage: 7.5 MILLIGRAM, 0.33 WEEK
     Route: 065
     Dates: start: 20161101
  23. ROACTEMRA [Suspect]
     Active Substance: TOCILIZUMAB
     Dosage: 4 MILLIGRAM
     Route: 058
     Dates: end: 20161015
  24. NOVAMINSULFON [Concomitant]
     Active Substance: METAMIZOLE
     Dosage: 60 GTT, DROP(1/12 MILLILLITRE) UNK,
  25. NOVAMINSULFON [Concomitant]
     Active Substance: METAMIZOLE
     Dosage: 40 DROP (1/12 ML)/DAY
     Route: 065
  26. AMITRIPTYLIN [Concomitant]
     Active Substance: AMITRIPTYLINE
     Indication: FIBROMYALGIA
     Dosage: UNK
     Route: 065
     Dates: start: 201701
  27. RAMIPRIL. [Concomitant]
     Active Substance: RAMIPRIL
     Indication: HYPERTENSION
     Dosage: 15 MG, UNK
     Route: 065
  28. DEKRISTOL [Concomitant]
     Active Substance: CHOLECALCIFEROL
     Indication: PRODUCT USED FOR UNKNOWN INDICATION
     Dosage: 20000 INTERNATIONAL UNIT, 1 WEEK
     Route: 065
  29. NOVAMINSULFON [Concomitant]
     Active Substance: METAMIZOLE
     Dosage: 120 GTT, DROP(1/12 MILLILLITRE), 1 DAY
  30. METHOTREXATE. [Concomitant]
     Active Substance: METHOTREXATE
     Indication: PRODUCT USED FOR UNKNOWN INDICATION
     Route: 065

REACTIONS (22)
  - Temporomandibular joint syndrome [Recovered/Resolved]
  - Musculoskeletal stiffness [Recovered/Resolved]
  - Abdominal pain [Recovered/Resolved]
  - Dyspnoea [Recovered/Resolved]
  - Mobility decreased [Not Recovered/Not Resolved]
  - Facial pain [Recovered/Resolved]
  - Tendon disorder [Not Recovered/Not Resolved]
  - Pain [Not Recovered/Not Resolved]
  - Pain in extremity [Not Recovered/Not Resolved]
  - Atrioventricular block [Not Recovered/Not Resolved]
  - Fear of injection [Not Recovered/Not Resolved]
  - Muscle spasms [Recovered/Resolved]
  - Musculoskeletal discomfort [Not Recovered/Not Resolved]
  - Rheumatoid arthritis [Not Recovered/Not Resolved]
  - Pain of skin [Recovered/Resolved]
  - Erythema [Unknown]
  - Abdominal pain lower [Recovered/Resolved]
  - Arrhythmia [Not Recovered/Not Resolved]
  - Arthralgia [Not Recovered/Not Resolved]
  - Blood pressure increased [Recovered/Resolved]
  - Rhinorrhoea [Not Recovered/Not Resolved]
  - Rheumatoid nodule [Not Recovered/Not Resolved]

NARRATIVE: CASE EVENT DATE: 20140623
